FAERS Safety Report 4994159-5 (Version None)
Quarter: 2006Q2

REPORT INFORMATION
  Report Type: 
  Country: None (occurrence: None)
  Receive Date: 20060505
  Receipt Date: 20060427
  Transmission Date: 20061013
  Serious: Yes (Death, Hospitalization)
  Sender: FDA-Public Use
  Company Number: US-SANOFI-SYNTHELABO-A03200602714

PATIENT
  Sex: Female
  Weight: 63.49 kg

DRUGS (7)
  1. PLAVIX [Suspect]
     Indication: STENT PLACEMENT
     Route: 048
     Dates: start: 20030101, end: 20060401
  2. ATENOLOL [Concomitant]
     Route: 048
  3. ASPIRIN [Concomitant]
     Route: 048
     Dates: start: 19930101, end: 20060411
  4. DARVON [Concomitant]
     Dosage: UNK
     Route: 065
     Dates: start: 20060401
  5. RAMIPRIL [Concomitant]
     Dosage: UNK
     Route: 065
  6. NPH INSULIN [Concomitant]
     Route: 065
  7. REGULAR INSULIN [Concomitant]
     Dosage: IF ABOVE 180 GIVE 3 UNITS OR APPROX. 1 UNIT FOR EVERY 50 POINTS ABOVE BLOOD SUGAR
     Route: 065

REACTIONS (4)
  - ARTERIAL THROMBOSIS [None]
  - CARDIAC ARREST [None]
  - DEATH [None]
  - POST PROCEDURAL COMPLICATION [None]
